FAERS Safety Report 17862296 (Version 4)
Quarter: 2021Q3

REPORT INFORMATION
  Report Type: Spontaneous
  Country: US (occurrence: US)
  Receive Date: 20200604
  Receipt Date: 20210705
  Transmission Date: 20211014
  Serious: Yes (Other)
  Sender: FDA-Public Use
  Company Number: US-GILEAD-2020-0469898

PATIENT
  Sex: Male
  Weight: 56.24 kg

DRUGS (45)
  1. FAMOTIDINE. [Concomitant]
     Active Substance: FAMOTIDINE
  2. OMEPRAZOLE. [Concomitant]
     Active Substance: OMEPRAZOLE
  3. PRAVASTATIN. [Concomitant]
     Active Substance: PRAVASTATIN
  4. EPIVIR [Concomitant]
     Active Substance: LAMIVUDINE
  5. PREZISTA [Concomitant]
     Active Substance: DARUNAVIR ETHANOLATE
  6. GLUCAGON. [Concomitant]
     Active Substance: GLUCAGON
  7. GADOLINIUM [Concomitant]
     Active Substance: GADOLINIUM
  8. CITALOPRAM [Concomitant]
     Active Substance: CITALOPRAM HYDROBROMIDE
  9. TRUVADA [Suspect]
     Active Substance: EMTRICITABINE\TENOFOVIR DISOPROXIL FUMARATE
     Dosage: UNK
     Route: 048
     Dates: start: 20111013, end: 201310
  10. CALCIUM [Concomitant]
     Active Substance: CALCIUM
  11. TRUVADA [Suspect]
     Active Substance: EMTRICITABINE\TENOFOVIR DISOPROXIL FUMARATE
     Indication: HIV INFECTION
     Dosage: UNK
     Route: 048
     Dates: start: 2004, end: 2010
  12. TRUVADA [Suspect]
     Active Substance: EMTRICITABINE\TENOFOVIR DISOPROXIL FUMARATE
     Dosage: UNK
     Route: 048
     Dates: start: 20140808, end: 201411
  13. FUROSEMIDE. [Concomitant]
     Active Substance: FUROSEMIDE
  14. ASPIRIN [ACETYLSALICYLIC ACID] [Concomitant]
     Active Substance: ASPIRIN
  15. CRESTOR [Concomitant]
     Active Substance: ROSUVASTATIN CALCIUM
  16. TIVICAY [Concomitant]
     Active Substance: DOLUTEGRAVIR SODIUM
  17. CARVEDILOL. [Concomitant]
     Active Substance: CARVEDILOL
  18. DEPO?TESTOSTERONE [Concomitant]
     Active Substance: TESTOSTERONE CYPIONATE
  19. LOVENOX [LEVOFLOXACIN] [Concomitant]
     Active Substance: LEVOFLOXACIN
  20. HUMALOG [Concomitant]
     Active Substance: INSULIN LISPRO
  21. ATORVASTATIN [Concomitant]
     Active Substance: ATORVASTATIN
  22. BACTRIM [Concomitant]
     Active Substance: SULFAMETHOXAZOLE\TRIMETHOPRIM
  23. PREZCOBIX [Concomitant]
     Active Substance: COBICISTAT\DARUNAVIR ETHANOLATE
  24. HYDROCORTISONE. [Concomitant]
     Active Substance: HYDROCORTISONE
  25. LANTUS [Concomitant]
     Active Substance: INSULIN GLARGINE
  26. ABACAVIR. [Concomitant]
     Active Substance: ABACAVIR
  27. VITAMIN D NOS [Concomitant]
     Active Substance: VITAMIN D NOS
  28. ACETAMINOPHEN. [Concomitant]
     Active Substance: ACETAMINOPHEN
  29. LASIX [Concomitant]
     Active Substance: FUROSEMIDE
  30. EPZICOM [Concomitant]
     Active Substance: ABACAVIR SULFATE\LAMIVUDINE
  31. NORVIR [Concomitant]
     Active Substance: RITONAVIR
  32. TRAZODONE [Concomitant]
     Active Substance: TRAZODONE HYDROCHLORIDE
  33. HECTOROL [Concomitant]
     Active Substance: DOXERCALCIFEROL
  34. AMOXICILLIN. [Concomitant]
     Active Substance: AMOXICILLIN
  35. LABETALOL HCL [Concomitant]
     Active Substance: LABETALOL HYDROCHLORIDE
  36. NAPROXEN. [Concomitant]
     Active Substance: NAPROXEN
  37. TRUVADA [Suspect]
     Active Substance: EMTRICITABINE\TENOFOVIR DISOPROXIL FUMARATE
     Dosage: UNK
     Route: 048
     Dates: start: 20131025, end: 201408
  38. CORTISONE [Concomitant]
     Active Substance: CORTISONE
  39. ZIAGEN [Concomitant]
     Active Substance: ABACAVIR SULFATE
  40. NIFEDIPINE. [Concomitant]
     Active Substance: NIFEDIPINE
  41. VIREAD [Suspect]
     Active Substance: TENOFOVIR DISOPROXIL FUMARATE
     Indication: HIV INFECTION
     Dosage: UNK
     Route: 048
     Dates: start: 2001, end: 2018
  42. AMITRIPTYLINE [Concomitant]
     Active Substance: AMITRIPTYLINE
  43. LISINOPRIL. [Concomitant]
     Active Substance: LISINOPRIL
  44. LANSOPRAZOLE. [Concomitant]
     Active Substance: LANSOPRAZOLE
  45. CYANOCOBALAMIN. [Concomitant]
     Active Substance: CYANOCOBALAMIN

REACTIONS (20)
  - Eating disorder [Unknown]
  - Renal failure [Unknown]
  - End stage renal disease [Unknown]
  - Hyperkalaemia [Unknown]
  - Proteinuria [Unknown]
  - Tooth loss [Unknown]
  - Pain [Unknown]
  - Emotional distress [Unknown]
  - Renal impairment [Unknown]
  - Osteoporosis [Unknown]
  - Nephropathy [Unknown]
  - Chronic kidney disease [Unknown]
  - Acute kidney injury [Unknown]
  - Foot fracture [Recovered/Resolved]
  - Osteopenia [Unknown]
  - Anaemia of chronic disease [Unknown]
  - Multiple fractures [Unknown]
  - Bone density decreased [Unknown]
  - Renal hypertension [Unknown]
  - Hypertension [Unknown]
